FAERS Safety Report 4684469-3 (Version None)
Quarter: 2005Q2

REPORT INFORMATION
  Report Type: 
  Country: None (occurrence: None)
  Receive Date: 20050606
  Receipt Date: 20050523
  Transmission Date: 20051028
  Serious: Yes (Hospitalization)
  Sender: FDA-Public Use
  Company Number: 2005077542

PATIENT
  Age: 60 Year
  Sex: Female
  Weight: 67.586 kg

DRUGS (3)
  1. BENADRYL [Suspect]
     Indication: ACCIDENTAL EXPOSURE
     Dosage: 1/2 TEASPOON ONCE, ORAL
     Route: 048
     Dates: start: 20050514, end: 20050514
  2. PROMETHAZINE HYDROCHLORIDE TAB [Concomitant]
  3. ALL OTHER THERAPEUTIC PRODUCTS (ALL OTHER THERAPEUTIC PRODUCTS) [Concomitant]

REACTIONS (10)
  - ACCIDENTAL EXPOSURE [None]
  - CYANOSIS [None]
  - DIZZINESS [None]
  - DYSSTASIA [None]
  - FEELING HOT AND COLD [None]
  - HYPOTONIA [None]
  - MALAISE [None]
  - MYDRIASIS [None]
  - NAUSEA [None]
  - VOMITING [None]
